FAERS Safety Report 25868150 (Version 1)
Quarter: 2025Q4

REPORT INFORMATION
  Report Type: Report from Study
  Country: CN (occurrence: CN)
  Receive Date: 20251001
  Receipt Date: 20251001
  Transmission Date: 20260117
  Serious: Yes (Death)
  Sender: REGENERON
  Company Number: CN-SA-SAC20220512000261

PATIENT
  Age: 67 Year
  Sex: Male

DRUGS (9)
  1. PRALUENT [Suspect]
     Active Substance: ALIROCUMAB
     Indication: Acute coronary syndrome
     Dosage: 75 MG, QOW, SOLUTION FOR INJECTION
     Route: 058
     Dates: start: 20220422
  2. METOPROLOL SUCCINATE [Concomitant]
     Active Substance: METOPROLOL SUCCINATE
     Indication: Hypertension
     Dosage: 11.875 MG, QD
     Route: 048
  3. DAPAGLIFLOZIN [Concomitant]
     Active Substance: DAPAGLIFLOZIN
     Indication: Type 2 diabetes mellitus
     Dosage: 10 MG, QD
     Route: 048
  4. PROTAMINE RECOMBINANT HUMAN INSULIN [Concomitant]
     Indication: Type 2 diabetes mellitus
     Dosage: 16 U
  5. INSULIN NOS [Concomitant]
     Active Substance: INSULIN NOS
     Indication: Type 2 diabetes mellitus
     Dosage: 6 U
     Route: 042
  6. SACUBITRIL\VALSARTAN [Concomitant]
     Active Substance: SACUBITRIL\VALSARTAN
     Indication: Cardiac failure
     Dosage: 0.025 G, BID
     Route: 048
  7. RECOMBINANT HUMAN BRAIN NATRIURETIC PEPTIDE [Concomitant]
     Indication: Cardiac failure
     Dosage: 0.50 MG, Q12H
     Route: 042
  8. EZETIMIBE [Concomitant]
     Active Substance: EZETIMIBE
     Indication: Hyperlipidaemia
     Dosage: 10 MG
     Route: 048
  9. ROSUVASTATIN CALCIUM [Concomitant]
     Active Substance: ROSUVASTATIN CALCIUM
     Indication: Hyperlipidaemia
     Dosage: 10 MG
     Route: 048

REACTIONS (1)
  - Cardiogenic shock [Fatal]

NARRATIVE: CASE EVENT DATE: 20220507
